FAERS Safety Report 7201223-9 (Version None)
Quarter: 2010Q4

REPORT INFORMATION
  Report Type: 
  Country: None (occurrence: None)
  Receive Date: 20101229
  Receipt Date: 20101217
  Transmission Date: 20110411
  Serious: Yes (Other)
  Sender: FDA-Public Use
  Company Number: US-ELI_LILLY_AND_COMPANY-US201012005001

PATIENT
  Sex: Female

DRUGS (1)
  1. EVISTA [Suspect]
     Dosage: 1 D/F, UNK

REACTIONS (3)
  - ARTERIOSCLEROSIS [None]
  - HYPERTENSION [None]
  - RETINAL VEIN OCCLUSION [None]
